FAERS Safety Report 20172875 (Version 1)
Quarter: 2021Q4

REPORT INFORMATION
  Report Type: Spontaneous
  Country: FR (occurrence: FR)
  Receive Date: 20211211
  Receipt Date: 20211211
  Transmission Date: 20220303
  Serious: Yes (Death)
  Sender: FDA-Public Use
  Company Number: None

PATIENT
  Age: 82 Year
  Sex: Female
  Weight: 48 kg

DRUGS (5)
  1. DOCETAXEL [Suspect]
     Active Substance: DOCETAXEL
     Indication: Triple negative breast cancer
     Dosage: 75 MG/M2
     Route: 042
     Dates: start: 20200822, end: 20201103
  2. CAPECITABINE [Suspect]
     Active Substance: CAPECITABINE
     Indication: Triple negative breast cancer
     Dosage: 2000 MG
     Route: 048
     Dates: start: 20210122, end: 20210418
  3. CARBOPLATIN [Suspect]
     Active Substance: CARBOPLATIN
     Indication: Triple negative breast cancer
     Dosage: AUC5
     Route: 042
     Dates: start: 20201124, end: 20210106
  4. CYCLOPHOSPHAMIDE [Suspect]
     Active Substance: CYCLOPHOSPHAMIDE
     Indication: Triple negative breast cancer
     Dosage: 500 MG/M2
     Dates: start: 20200630, end: 20200801
  5. EPIRUBICIN HYDROCHLORIDE [Suspect]
     Active Substance: EPIRUBICIN HYDROCHLORIDE
     Indication: Triple negative breast cancer
     Dosage: 100 MG/M2
     Route: 042
     Dates: start: 20200630, end: 20200801

REACTIONS (1)
  - Congestive cardiomyopathy [Fatal]

NARRATIVE: CASE EVENT DATE: 20210418
